FAERS Safety Report 9325275 (Version 1)
Quarter: 2013Q2

REPORT INFORMATION
  Report Type: Spontaneous
  Country: US (occurrence: US)
  Receive Date: 20130604
  Receipt Date: 20130604
  Transmission Date: 20140414
  Serious: Yes (Other)
  Sender: FDA-Public Use
  Company Number: US-BIOGENIDEC-2013BI048863

PATIENT
  Sex: Female

DRUGS (1)
  1. AVONEX [Suspect]
     Indication: EXPOSURE VIA FATHER

REACTIONS (2)
  - Foetal heart rate deceleration [Unknown]
  - Low birth weight baby [Unknown]
